FAERS Safety Report 4577960-1 (Version None)
Quarter: 2005Q1

REPORT INFORMATION
  Report Type: 
  Country: None (occurrence: None)
  Receive Date: 20050209
  Receipt Date: 20050126
  Transmission Date: 20050727
  Serious: Yes (Hospitalization)
  Sender: FDA-Public Use
  Company Number: EWC041241754

PATIENT
  Age: 74 Year
  Sex: Female

DRUGS (13)
  1. FORTEO [Suspect]
     Dosage: 20 UG/1 DAY
     Dates: start: 20041015, end: 20041126
  2. PLENDIL [Concomitant]
  3. CORODIL (ENALAPRIL) [Concomitant]
  4. HJERTEMAGNYL [Concomitant]
  5. PERSANTIN [Concomitant]
  6. CENTYL MED KALIUMKLORID [Concomitant]
  7. POTASSIUM CHLORIDE [Concomitant]
  8. DOLOL (TRAMADOL CICLUM) [Concomitant]
  9. ANAFRANIL [Concomitant]
  10. FLUANXOL MITE (FLUPENTIXOL) [Concomitant]
  11. UNIKALK [Concomitant]
  12. PINEX (PARACETAMOL) [Concomitant]
  13. ZARATOR (ATORVASTATIN) [Concomitant]

REACTIONS (9)
  - CONFUSIONAL STATE [None]
  - CORONARY ARTERY INSUFFICIENCY [None]
  - COUGH [None]
  - DEPRESSION [None]
  - DYSPNOEA [None]
  - FATIGUE [None]
  - HYPERCALCAEMIA [None]
  - INFECTION [None]
  - OEDEMA PERIPHERAL [None]
